FAERS Safety Report 18520108 (Version 1)
Quarter: 2020Q4

REPORT INFORMATION
  Report Type: Report from Study
  Country: US (occurrence: US)
  Receive Date: 20201119
  Receipt Date: 20201119
  Transmission Date: 20210114
  Serious: Yes (Other)
  Sender: FDA-Public Use
  Company Number: US-SA-2020SA327761

PATIENT

DRUGS (1)
  1. ALIROCUMAB [Suspect]
     Active Substance: ALIROCUMAB
     Indication: HYPERCHOLESTEROLAEMIA
     Dosage: 150 MG, QOW
     Route: 058
     Dates: start: 20200201, end: 20201009

REACTIONS (8)
  - Fatigue [Recovered/Resolved]
  - Musculoskeletal pain [Recovered/Resolved]
  - Throat irritation [Recovered/Resolved]
  - Sudden hearing loss [Recovered/Resolved]
  - Muscle spasms [Recovered/Resolved]
  - Neuralgia [Recovered/Resolved]
  - Arthralgia [Recovered/Resolved]
  - Rhinorrhoea [Recovered/Resolved]

NARRATIVE: CASE EVENT DATE: 2020
